FAERS Safety Report 23221314 (Version 1)
Quarter: 2023Q4

REPORT INFORMATION
  Report Type: Spontaneous
  Country: US (occurrence: US)
  Receive Date: 20231123
  Receipt Date: 20231123
  Transmission Date: 20240110
  Serious: Yes (Hospitalization, Disabling)
  Sender: FDA-Public Use
  Company Number: US-STRIDES ARCOLAB LIMITED-2023SP017412

PATIENT
  Age: 52 Year
  Sex: Male

DRUGS (6)
  1. METHOTREXATE [Suspect]
     Active Substance: METHOTREXATE
     Indication: Rheumatoid arthritis
     Dosage: 15 MILLIGRAM; PER WEEK
     Route: 048
  2. GOLIMUMAB [Suspect]
     Active Substance: GOLIMUMAB
     Indication: Rheumatoid arthritis
     Dosage: 50 MILLIGRAM; PER MONTH
     Route: 058
  3. TOZINAMERAN [Suspect]
     Active Substance: TOZINAMERAN
     Indication: COVID-19 immunisation
     Dosage: UNK, SINGLE; RECEIVED SECOND DOSE
     Route: 065
  4. WARFARIN [Concomitant]
     Active Substance: WARFARIN
     Indication: Anticoagulant therapy
     Dosage: 9 MILLIGRAM; PER DAY; ON WEEKDAYS
     Route: 065
  5. WARFARIN [Concomitant]
     Active Substance: WARFARIN
     Dosage: 6 MILLIGRAM; PER DAY; ON SATURDAY AND SUNDAY
     Route: 065
  6. WARFARIN [Concomitant]
     Active Substance: WARFARIN
     Dosage: UNK; RESUMED
     Route: 065

REACTIONS (6)
  - Antiphospholipid syndrome [Recovered/Resolved]
  - Autoimmune disorder [Recovered/Resolved]
  - Movement disorder [Recovered/Resolved]
  - Coagulopathy [Recovered/Resolved]
  - Cerebellar stroke [Unknown]
  - Cytomegalovirus infection reactivation [Unknown]
